FAERS Safety Report 7756871-4 (Version None)
Quarter: 2011Q3

REPORT INFORMATION
  Report Type: 
  Country: None (occurrence: None)
  Receive Date: 20110916
  Receipt Date: 20110907
  Transmission Date: 20111222
  Serious: Yes (Hospitalization, Other)
  Sender: FDA-Public Use
  Company Number: US-BAYER-2011-013074

PATIENT
  Age: 42 Year
  Sex: Female
  Weight: 98 kg

DRUGS (13)
  1. ALBUTEROL [Concomitant]
     Indication: ASTHMA
     Dosage: 2 PUFF(S), PRN
     Route: 048
  2. YAZ [Suspect]
     Indication: CONTRACEPTION
     Dosage: UNK
     Dates: start: 20090301, end: 20090401
  3. YAZ [Suspect]
     Indication: VAGINAL HAEMORRHAGE
  4. ADVAIR DISKUS 100/50 [Concomitant]
     Indication: ASTHMA
     Dosage: UNK UNK, BID
     Route: 045
  5. MEGACE [Concomitant]
     Dosage: UNK UNK, BID
  6. PAXIL [Concomitant]
     Dosage: 60 MG, QD
     Route: 048
  7. EPIPEN [Concomitant]
  8. LYRICA [Concomitant]
  9. YAZ [Suspect]
     Indication: MUSCLE SPASMS
  10. CLONAZEPAM [Concomitant]
     Dosage: 0.5 MG, TID
     Route: 048
  11. TRAZODONE HCL [Concomitant]
     Dosage: 100 MG, UNK
     Route: 048
  12. VOLTAREN [Concomitant]
  13. FLUOXETINE [Concomitant]
     Dosage: 60 MG, UNK
     Route: 048

REACTIONS (3)
  - PAIN [None]
  - INJURY [None]
  - DEEP VEIN THROMBOSIS [None]
